FAERS Safety Report 20997723 (Version 2)
Quarter: 2022Q3

REPORT INFORMATION
  Report Type: Spontaneous
  Country: US (occurrence: US)
  Receive Date: 20220623
  Receipt Date: 20220729
  Transmission Date: 20221026
  Serious: Yes (Other)
  Sender: FDA-Public Use
  Company Number: US-JNJFOC-20220630319

PATIENT
  Age: 55 Year
  Sex: Male

DRUGS (4)
  1. ELMIRON [Suspect]
     Active Substance: PENTOSAN POLYSULFATE SODIUM
     Indication: Cystitis interstitial
     Route: 048
     Dates: start: 2016
  2. ELMIRON [Suspect]
     Active Substance: PENTOSAN POLYSULFATE SODIUM
     Route: 048
     Dates: start: 201604, end: 201907
  3. ELMIRON [Suspect]
     Active Substance: PENTOSAN POLYSULFATE SODIUM
     Route: 048
     Dates: end: 2020
  4. TADALAFIL [Concomitant]
     Active Substance: TADALAFIL
     Indication: Vasodilatation
     Dates: start: 201811

REACTIONS (4)
  - Central vision loss [Unknown]
  - Retinal pigmentation [Not Recovered/Not Resolved]
  - Metamorphopsia [Unknown]
  - Off label use [Unknown]

NARRATIVE: CASE EVENT DATE: 20160401
